FAERS Safety Report 7091822-X (Version None)
Quarter: 2010Q4

REPORT INFORMATION
  Report Type: 
  Country: None (occurrence: None)
  Receive Date: 20101101
  Receipt Date: 20101014
  Transmission Date: 20110411
  Serious: Yes (Hospitalization)
  Sender: FDA-Public Use
  Company Number: ACO_02754_2010

PATIENT
  Sex: Male

DRUGS (3)
  1. AMPYRA [Suspect]
     Indication: PRODUCT USED FOR UNKNOWN INDICATION
     Dosage: (DF)
  2. COPAXONE [Suspect]
     Indication: MULTIPLE SCLEROSIS
     Dosage: (SUBCUTANEOUS)
     Route: 058
     Dates: start: 20060817
  3. BACLOFEN [Concomitant]

REACTIONS (5)
  - ASTHENIA [None]
  - DIZZINESS [None]
  - INCONTINENCE [None]
  - MUSCULAR WEAKNESS [None]
  - PERONEAL NERVE PALSY [None]
